FAERS Safety Report 6981045-4 (Version None)
Quarter: 2010Q3

REPORT INFORMATION
  Report Type: 
  Country: None (occurrence: None)
  Receive Date: 20100914
  Receipt Date: 20100906
  Transmission Date: 20110219
  Serious: Yes (Life-Threatening, Other)
  Sender: FDA-Public Use
  Company Number: GB-TEVA-247335ISR

PATIENT
  Age: 61 Year
  Sex: Male

DRUGS (3)
  1. PREDNISOLONE [Suspect]
     Indication: TEMPORAL ARTERITIS
  2. PREDNISOLONE [Suspect]
  3. PREDNISOLONE [Suspect]

REACTIONS (1)
  - CEREBROVASCULAR ACCIDENT [None]
